FAERS Safety Report 15213762 (Version 4)
Quarter: 2020Q4

REPORT INFORMATION
  Report Type: Spontaneous
  Country: US (occurrence: US)
  Receive Date: 20180730
  Receipt Date: 20201022
  Transmission Date: 20210113
  Serious: No
  Sender: FDA-Public Use
  Company Number: US-SA-2018SA007808

PATIENT

DRUGS (13)
  1. AUBAGIO [Suspect]
     Active Substance: TERIFLUNOMIDE
     Indication: MULTIPLE SCLEROSIS
     Dosage: 14 MG,QD
     Route: 048
     Dates: start: 20171227
  2. BACLOFEN. [Concomitant]
     Active Substance: BACLOFEN
  3. GABAPENTIN. [Concomitant]
     Active Substance: GABAPENTIN
  4. OXYBUTYNIN. [Concomitant]
     Active Substance: OXYBUTYNIN CHLORIDE
  5. PAROXETINE. [Concomitant]
     Active Substance: PAROXETINE
  6. DOCUSATE SOD [Concomitant]
  7. AMBIEN [Concomitant]
     Active Substance: ZOLPIDEM TARTRATE
     Route: 065
  8. MULTIVITE [VITAMINS NOS] [Concomitant]
  9. NAPROXEN. [Concomitant]
     Active Substance: NAPROXEN
  10. AMPYRA [Concomitant]
     Active Substance: DALFAMPRIDINE
  11. GABITRIL [Concomitant]
     Active Substance: TIAGABINE HYDROCHLORIDE
  12. ZANAFLEX [Concomitant]
     Active Substance: TIZANIDINE HYDROCHLORIDE
  13. VICODIN [Concomitant]
     Active Substance: ACETAMINOPHEN\HYDROCODONE BITARTRATE

REACTIONS (7)
  - Musculoskeletal stiffness [Unknown]
  - Sciatica [Unknown]
  - Abdominal pain upper [Not Recovered/Not Resolved]
  - Fall [Unknown]
  - Sensory disturbance [Unknown]
  - Nausea [Not Recovered/Not Resolved]
  - Pain [Unknown]

NARRATIVE: CASE EVENT DATE: 20180721
